FAERS Safety Report 22043910 (Version 1)
Quarter: 2023Q1

REPORT INFORMATION
  Report Type: Spontaneous
  Country: FR (occurrence: FR)
  Receive Date: 20230228
  Receipt Date: 20230228
  Transmission Date: 20230417
  Serious: Yes (Other)
  Sender: FDA-Public Use
  Company Number: None

PATIENT
  Age: 40 Year
  Sex: Male
  Weight: 56 kg

DRUGS (2)
  1. CIMZIA [Suspect]
     Active Substance: CERTOLIZUMAB PEGOL
     Indication: Ankylosing spondylitis
     Dosage: 1 DOSAGE FORM, EV 2 WEEKS(QOW)
     Dates: start: 20230112
  2. SIMPONI [Suspect]
     Active Substance: GOLIMUMAB
     Indication: Ankylosing spondylitis
     Dosage: 1 DOSAGE FORM, MONTHLY (QM)
     Dates: start: 20181018, end: 20220217

REACTIONS (1)
  - Paradoxical psoriasis [Recovering/Resolving]

NARRATIVE: CASE EVENT DATE: 20210819
